FAERS Safety Report 6075889-3 (Version None)
Quarter: 2009Q1

REPORT INFORMATION
  Report Type: 
  Country: None (occurrence: None)
  Receive Date: 20090212
  Receipt Date: 20090204
  Transmission Date: 20090719
  Serious: Yes (Other)
  Sender: FDA-Public Use
  Company Number: FR-AVENTIS-200910387FR

PATIENT
  Age: 61 Year
  Sex: Female

DRUGS (1)
  1. KETEK [Suspect]
     Route: 048
     Dates: start: 20090116, end: 20090126

REACTIONS (2)
  - NEOPLASM MALIGNANT [None]
  - RASH ERYTHEMATOUS [None]
